FAERS Safety Report 11750002 (Version 1)
Quarter: 2015Q4

REPORT INFORMATION
  Report Type: Spontaneous
  Country: FR (occurrence: FR)
  Receive Date: 20151118
  Receipt Date: 20151118
  Transmission Date: 20160304
  Serious: Yes (Hospitalization, Other)
  Sender: FDA-Public Use
  Company Number: FR-BAXTER-2015BAX060820

PATIENT
  Age: 72 Year
  Sex: Female

DRUGS (17)
  1. SETOFILM [Suspect]
     Active Substance: ONDANSETRON
     Indication: PROPHYLAXIS OF NAUSEA AND VOMITING
     Dosage: UPON REQUEST
     Route: 048
     Dates: start: 20150827, end: 20150831
  2. FLUOROURACILE ACCORD [Suspect]
     Active Substance: FLUOROURACIL
     Indication: INVASIVE DUCTAL BREAST CARCINOMA
     Dosage: FIRST CYCLE
     Route: 042
     Dates: start: 20150806, end: 20150806
  3. FARMORUBICINE [Suspect]
     Active Substance: EPIRUBICIN HYDROCHLORIDE
     Indication: INVASIVE DUCTAL BREAST CARCINOMA
     Dosage: FIRST CYCLE
     Route: 042
     Dates: start: 20150806, end: 20150806
  4. PRIMPERAN [Suspect]
     Active Substance: METOCLOPRAMIDE HYDROCHLORIDE
     Indication: VOMITING
     Dosage: UPON REQUEST FOR THE FIRST COURSE
     Route: 048
  5. PRIMPERAN [Suspect]
     Active Substance: METOCLOPRAMIDE HYDROCHLORIDE
     Dosage: UPON REQUEST SO DURING 3 DAYS FOR THE FIRST COURSE AND DURING 8 DAYS FOR THE SECOND COURSE
     Route: 048
     Dates: start: 20150827, end: 20150904
  6. ENDOXAN 1000 MG, POUDRE POUR SOLUTION INJECTABLE [Suspect]
     Active Substance: CYCLOPHOSPHAMIDE
     Indication: INVASIVE DUCTAL BREAST CARCINOMA
     Dosage: FIRST CYCLE
     Route: 042
     Dates: start: 20150806, end: 20150806
  7. SOLUPRED [Suspect]
     Active Substance: PREDNISOLONE
     Indication: PROPHYLAXIS OF NAUSEA AND VOMITING
     Route: 048
     Dates: start: 20150827, end: 20150830
  8. IXPRIM [Concomitant]
     Active Substance: ACETAMINOPHEN\TRAMADOL HYDROCHLORIDE
     Indication: PRODUCT USED FOR UNKNOWN INDICATION
     Route: 065
  9. EMEND [Suspect]
     Active Substance: APREPITANT
     Indication: PROPHYLAXIS OF NAUSEA AND VOMITING
     Route: 048
     Dates: start: 20150827, end: 20150830
  10. ALDACTAZINE [Concomitant]
     Active Substance: ALTHIAZIDE\SPIRONOLACTONE
     Indication: PRODUCT USED FOR UNKNOWN INDICATION
     Route: 065
  11. ENDOXAN 1000 MG, POUDRE POUR SOLUTION INJECTABLE [Suspect]
     Active Substance: CYCLOPHOSPHAMIDE
     Dosage: SECOND CYCLE
     Route: 042
     Dates: start: 20150827, end: 20150827
  12. FARMORUBICINE [Suspect]
     Active Substance: EPIRUBICIN HYDROCHLORIDE
     Dosage: SECOND CYCLE
     Route: 042
     Dates: start: 20150827, end: 20150827
  13. MOPRAL [Concomitant]
     Active Substance: OMEPRAZOLE SODIUM
     Indication: PRODUCT USED FOR UNKNOWN INDICATION
     Route: 065
  14. LUMIGAN [Concomitant]
     Active Substance: BIMATOPROST
     Indication: PRODUCT USED FOR UNKNOWN INDICATION
     Route: 065
  15. FLUOROURACILE ACCORD [Suspect]
     Active Substance: FLUOROURACIL
     Dosage: SECOND CYCLE
     Route: 042
     Dates: start: 20150827, end: 20150827
  16. MONOCRIXO [Concomitant]
     Active Substance: TRAMADOL HYDROCHLORIDE
     Indication: PRODUCT USED FOR UNKNOWN INDICATION
     Route: 065
  17. XANAX [Concomitant]
     Active Substance: ALPRAZOLAM
     Indication: PREMEDICATION
     Dosage: THE MORNING OF CHEMOTHERAPY
     Route: 065

REACTIONS (4)
  - Epistaxis [Unknown]
  - Colitis [Recovered/Resolved]
  - Facial bones fracture [Unknown]
  - Fall [Unknown]

NARRATIVE: CASE EVENT DATE: 20150904
